FAERS Safety Report 9157622 (Version 2)
Quarter: 2016Q4

REPORT INFORMATION
  Report Type: Spontaneous
  Country: US (occurrence: US)
  Receive Date: 20130311
  Receipt Date: 20161104
  Transmission Date: 20170207
  Serious: Yes (Other)
  Sender: FDA-Public Use
  Company Number: US-RB-040466-12

PATIENT
  Sex: Female

DRUGS (4)
  1. NICOTINE. [Concomitant]
     Active Substance: NICOTINE
     Indication: PRODUCT USED FOR UNKNOWN INDICATION
     Dosage: DOSAGE DETAILS UNKNOWN
     Route: 065
  2. OPIATES [Suspect]
     Active Substance: UNSPECIFIED INGREDIENT
     Indication: PRODUCT USED FOR UNKNOWN INDICATION
     Dosage: DOSAGE DETAILS UNKNOWN
     Route: 065
  3. SUBOXONE [Suspect]
     Active Substance: BUPRENORPHINE HYDROCHLORIDE\NALOXONE HYDROCHLORIDE
     Indication: DRUG DEPENDENCE
     Dosage: SUBOXONE FILM; 1 AND 1/2 FILM EVERY 12 HOURS (1 1/2 Q DAY)
     Route: 060
  4. BENZOS [Suspect]
     Active Substance: BENZODIAZEPINE
     Indication: PRODUCT USED FOR UNKNOWN INDICATION
     Dosage: DOSAGE DETAILS UNKNOWN
     Route: 065

REACTIONS (6)
  - Product preparation error [Not Recovered/Not Resolved]
  - Premature delivery [Recovered/Resolved]
  - Umbilical cord prolapse [Recovered/Resolved]
  - Intentional product misuse [Unknown]
  - Maternal exposure during pregnancy [Recovered/Resolved]
  - Premature separation of placenta [Recovered/Resolved]

NARRATIVE: CASE EVENT DATE: 2012
